FAERS Safety Report 13052387 (Version 3)
Quarter: 2017Q1

REPORT INFORMATION
  Report Type: Spontaneous
  Country: US (occurrence: US)
  Receive Date: 20161221
  Receipt Date: 20170304
  Transmission Date: 20170428
  Serious: No
  Sender: FDA-Public Use
  Company Number: US-LUNDBECK-DKLU2023603

PATIENT
  Sex: Female

DRUGS (5)
  1. NORTHERA [Suspect]
     Active Substance: DROXIDOPA
     Indication: POSTURAL ORTHOSTATIC TACHYCARDIA SYNDROME
     Dosage: TITRATION COMPLETE
     Route: 065
  2. NORTHERA [Suspect]
     Active Substance: DROXIDOPA
     Dosage: TITRATION COMPLETE
     Route: 065
  3. NORTHERA [Suspect]
     Active Substance: DROXIDOPA
     Route: 065
  4. NORTHERA [Suspect]
     Active Substance: DROXIDOPA
     Dosage: 300MG AND 200MG TO MAKE UP 500MG TID
     Route: 048
  5. NORTHERA [Suspect]
     Active Substance: DROXIDOPA
     Dosage: 300MG AND 200MG TO MAKE UP 500MG TID
     Route: 048

REACTIONS (15)
  - Polydipsia [Unknown]
  - Malaise [Unknown]
  - Dyspnoea exertional [Unknown]
  - Influenza [Recovering/Resolving]
  - Vomiting [Unknown]
  - Pyrexia [Unknown]
  - Snoring [Unknown]
  - Arthritis [Unknown]
  - Myalgia [Unknown]
  - Paraesthesia [Unknown]
  - Gastrointestinal disorder [Recovering/Resolving]
  - Night sweats [Unknown]
  - Condition aggravated [Unknown]
  - Fatigue [Unknown]
  - Nausea [Unknown]
